FAERS Safety Report 5300400-1 (Version None)
Quarter: 2007Q2

REPORT INFORMATION
  Report Type: 
  Country: None (occurrence: None)
  Receive Date: 20070418
  Receipt Date: 20070417
  Transmission Date: 20071010
  Serious: Yes (Hospitalization)
  Sender: FDA-Public Use
  Company Number: DE-BRISTOL-MYERS SQUIBB COMPANY-13750039

PATIENT
  Age: 60 Year
  Sex: Female
  Weight: 51 kg

DRUGS (3)
  1. CARBOPLATIN [Suspect]
     Indication: OVARIAN CANCER
     Dates: start: 20060517, end: 20061012
  2. DOXORUBICIN HCL [Suspect]
     Indication: OVARIAN CANCER
     Dates: start: 20060517, end: 20061012
  3. NEULASTA [Suspect]
     Indication: CHEMOTHERAPY
     Route: 058
     Dates: start: 20060721, end: 20061013

REACTIONS (2)
  - PLEURISY [None]
  - SPLENIC RUPTURE [None]
